FAERS Safety Report 21220798 (Version 1)
Quarter: 2022Q3

REPORT INFORMATION
  Report Type: Report from Study
  Country: CN (occurrence: CN)
  Receive Date: 20220817
  Receipt Date: 20220817
  Transmission Date: 20221026
  Serious: Yes (Hospitalization, Other)
  Sender: FDA-Public Use
  Company Number: CN-GILEAD-2022-0593448

PATIENT

DRUGS (5)
  1. SOFOSBUVIR\VELPATASVIR [Suspect]
     Active Substance: SOFOSBUVIR\VELPATASVIR
     Indication: Chronic hepatitis C
     Dosage: 1 DOSAGE FORM, QD
     Route: 048
  2. ISONIAZID [Concomitant]
     Active Substance: ISONIAZID
  3. RIFAMPIN [Concomitant]
     Active Substance: RIFAMPIN
  4. PYRAZINAMIDE [Concomitant]
     Active Substance: PYRAZINAMIDE
  5. ETHAMBUTOL [Concomitant]
     Active Substance: ETHAMBUTOL HYDROCHLORIDE

REACTIONS (1)
  - Liver injury [Unknown]
